FAERS Safety Report 9957677 (Version 1)
Quarter: 2014Q1

REPORT INFORMATION
  Report Type: Report from Study
  Country: US (occurrence: US)
  Receive Date: 20140304
  Receipt Date: 20140304
  Transmission Date: 20141002
  Serious: No
  Sender: FDA-Public Use
  Company Number: US-ABBVIE-13P-163-1096038-00

PATIENT
  Age: 46 Year
  Sex: Male
  Weight: 98.06 kg

DRUGS (7)
  1. HUMIRA [Suspect]
     Indication: REITER^S SYNDROME
     Route: 058
     Dates: start: 2009
  2. METHADONE [Concomitant]
     Indication: PAIN MANAGEMENT
  3. WARFARIN [Concomitant]
     Indication: DEEP VEIN THROMBOSIS
  4. FOLIC ACID [Concomitant]
     Indication: VITAMIN SUPPLEMENTATION
  5. MULTIVITAMIN [Concomitant]
     Indication: VITAMIN SUPPLEMENTATION
  6. OMEPRAZOLE [Concomitant]
     Indication: PROPHYLAXIS AGAINST GASTROINTESTINAL ULCER
  7. TREXALL [Concomitant]
     Indication: REITER^S SYNDROME

REACTIONS (2)
  - Off label use [Unknown]
  - Nausea [Not Recovered/Not Resolved]
